FAERS Safety Report 4954143-4 (Version None)
Quarter: 2006Q1

REPORT INFORMATION
  Report Type: 
  Country: None (occurrence: None)
  Receive Date: 20060327
  Receipt Date: 20041203
  Transmission Date: 20060701
  Serious: Yes (Hospitalization)
  Sender: FDA-Public Use
  Company Number: 2004AP06186

PATIENT
  Age: 27610 Day
  Sex: Female

DRUGS (9)
  1. IRESSA [Suspect]
     Indication: NON-SMALL CELL LUNG CANCER
     Route: 048
     Dates: start: 20041025, end: 20041206
  2. CARBOPLATIN [Suspect]
     Indication: NON-SMALL CELL LUNG CANCER
  3. RADIOTHERAPY [Suspect]
     Indication: NON-SMALL CELL LUNG CANCER
     Dates: end: 20041206
  4. PERINDOPRIL [Concomitant]
     Indication: HYPERTENSION
  5. LERCANIDIPINE [Concomitant]
     Indication: HYPERTENSION
  6. ATENOLOL [Concomitant]
     Indication: HYPERTENSION
  7. LOPERAMIDE [Concomitant]
     Indication: DIARRHOEA
     Dates: start: 20041105
  8. PHOLCODIENE LINCTUS [Concomitant]
     Indication: COUGH
     Dates: start: 20041115
  9. MAGMIN [Concomitant]
     Indication: PROPHYLAXIS
     Dates: start: 20041207

REACTIONS (2)
  - FEBRILE NEUTROPENIA [None]
  - OESOPHAGITIS [None]
